FAERS Safety Report 17945420 (Version 5)
Quarter: 2020Q3

REPORT INFORMATION
  Report Type: Spontaneous
  Country: HU (occurrence: HU)
  Receive Date: 20200625
  Receipt Date: 20200718
  Transmission Date: 20201103
  Serious: Yes (Hospitalization)
  Sender: FDA-Public Use
  Company Number: NVSC2020HU174591

PATIENT
  Age: 3 Year
  Sex: Female
  Weight: 20 kg

DRUGS (8)
  1. IBUPROFEN. [Suspect]
     Active Substance: IBUPROFEN
     Indication: PNEUMONIA
  2. FLAMBORIN [Suspect]
     Active Substance: METAMIZOLE SODIUM
     Indication: PNEUMONIA
     Dosage: 1 DF, 3.8 DROPS SOLUTION
     Route: 065
  3. FLAMBORIN [Suspect]
     Active Substance: METAMIZOLE SODIUM
     Indication: PYREXIA
  4. IBUPROFEN. [Suspect]
     Active Substance: IBUPROFEN
     Indication: PYREXIA
  5. CEFUROXIME. [Suspect]
     Active Substance: CEFUROXIME
     Indication: PNEUMONIA
  6. CEFUROXIME. [Suspect]
     Active Substance: CEFUROXIME
     Indication: PNEUMONIA MYCOPLASMAL
     Dosage: UNK
     Route: 065
  7. FLAMBORIN [Suspect]
     Active Substance: METAMIZOLE SODIUM
     Indication: PNEUMONIA MYCOPLASMAL
  8. IBUPROFEN. [Suspect]
     Active Substance: IBUPROFEN
     Indication: PNEUMONIA MYCOPLASMAL
     Dosage: UNK
     Route: 065

REACTIONS (2)
  - Stevens-Johnson syndrome [Recovering/Resolving]
  - Product use issue [Unknown]
